FAERS Safety Report 9030887 (Version 1)
Quarter: 2013Q1

REPORT INFORMATION
  Report Type: Spontaneous
  Country: JP (occurrence: JP)
  Receive Date: 20130123
  Receipt Date: 20130123
  Transmission Date: 20140127
  Serious: Yes (Hospitalization, Other)
  Sender: FDA-Public Use
  Company Number: JP-ROXANE LABORATORIES, INC.-2012-BI-00611GD

PATIENT
  Age: 47 Year
  Sex: Female

DRUGS (3)
  1. BROTIZOLAM [Suspect]
  2. IMATINIB [Suspect]
     Indication: CHRONIC MYELOID LEUKAEMIA
  3. TRIAZOLAM [Suspect]

REACTIONS (6)
  - Suicide attempt [Unknown]
  - Overdose [Unknown]
  - Loss of consciousness [Recovered/Resolved]
  - Coma [Recovered/Resolved]
  - Gastrointestinal hypomotility [Unknown]
  - Muscle spasms [Unknown]
